FAERS Safety Report 8914870 (Version 1)
Quarter: 2012Q4

REPORT INFORMATION
  Report Type: 
  Country: SK (occurrence: SK)
  Receive Date: 20121116
  Receipt Date: 20121116
  Transmission Date: 20130627
  Serious: Yes (Other)
  Sender: FDA-Public Use
  Company Number: SK-UCBSA-055388

PATIENT
  Age: 26 Year
  Sex: Female

DRUGS (5)
  1. VIMPAT [Suspect]
     Indication: EPILEPSY
     Route: 048
     Dates: start: 20110222
  2. TOPIRAMAT [Concomitant]
     Indication: EPILEPSY
     Dosage: 100-0-150 MG
     Route: 048
     Dates: start: 20110628
  3. PYRIDOXIN [Concomitant]
     Indication: EPILEPSY
     Dosage: 1-0-1
     Route: 048
     Dates: start: 20120417
  4. KETOSTERIL [Concomitant]
     Indication: RENAL FAILURE CHRONIC
     Dosage: MORE YEARS, 1-0-1
     Route: 048
  5. MILURIT [Concomitant]
     Indication: RENAL FAILURE CHRONIC
     Dosage: MORE YEARS, 1-0-0
     Route: 048

REACTIONS (3)
  - Placenta praevia [Unknown]
  - Abortion induced [Unknown]
  - Pregnancy [Recovered/Resolved]
